FAERS Safety Report 8560086-X (Version None)
Quarter: 2012Q3

REPORT INFORMATION
  Report Type: 
  Country: None (occurrence: None)
  Receive Date: 20120723
  Receipt Date: 20120702
  Transmission Date: 20120928
  Serious: Yes (Life-Threatening)
  Sender: FDA-Public Use
  Company Number: EUS-2012-00476

PATIENT
  Age: 9 Year
  Sex: Female

DRUGS (1)
  1. ASPARAGINASE (ASPARAGINASE) [Suspect]
     Indication: T-CELL TYPE ACUTE LEUKAEMIA
     Dosage: INTRAVENOUS
     Route: 042

REACTIONS (7)
  - LOSS OF CONSCIOUSNESS [None]
  - HYPERTENSION [None]
  - SUPERIOR SAGITTAL SINUS THROMBOSIS [None]
  - LEUKOENCEPHALOPATHY [None]
  - MULTI-ORGAN FAILURE [None]
  - QUADRIPLEGIA [None]
  - TACHYCARDIA [None]
